FAERS Safety Report 5991529-3 (Version None)
Quarter: 2008Q4

REPORT INFORMATION
  Report Type: 
  Country: None (occurrence: None)
  Receive Date: 20081211
  Receipt Date: 20081205
  Transmission Date: 20090506
  Serious: Yes (Death)
  Sender: FDA-Public Use
  Company Number: JP-ALLERGAN-0807946US

PATIENT
  Sex: Male

DRUGS (10)
  1. BOTOX [Suspect]
     Indication: TORTICOLLIS
     Dosage: 80 UNITS, SINGLE
     Route: 030
     Dates: start: 20080522, end: 20080522
  2. NORFLOXACIN [Concomitant]
     Indication: DRUG USE FOR UNKNOWN INDICATION
  3. CLOSTRIDIUM BUTYRICUM [Concomitant]
     Indication: DRUG USE FOR UNKNOWN INDICATION
  4. PHENOBARBITAL TAB [Concomitant]
     Indication: EPILEPSY
     Dosage: 5 ML, BID
     Route: 048
     Dates: start: 20041210, end: 20061215
  5. PHENOBARBITAL TAB [Concomitant]
     Dosage: 25 MG, BID
     Route: 048
     Dates: start: 20061215, end: 20070406
  6. PHENOBARBITAL TAB [Concomitant]
     Dosage: 27.5 MG, BID
     Route: 048
     Dates: start: 20070406, end: 20080529
  7. FAMOTIDINE [Concomitant]
     Indication: GASTROOESOPHAGEAL REFLUX DISEASE
     Dosage: 2 MG, TID
     Route: 048
     Dates: start: 20060512, end: 20080529
  8. MOSAPRIDE CITRATE [Concomitant]
     Indication: GASTROINTESTINAL DISORDER
     Dosage: 1 MG, TID
     Route: 048
     Dates: start: 20060512, end: 20080529
  9. LYSOZYME HYDROCHLORIDE [Concomitant]
     Indication: BRONCHITIS CHRONIC
     Dosage: 20 MG, TID
     Route: 048
     Dates: start: 20060512, end: 20080529
  10. AMBROXOL HYDROCHLORIDE [Concomitant]
     Indication: BRONCHITIS CHRONIC
     Dosage: 3.3 MG, TID
     Route: 048
     Dates: start: 20060512, end: 20080529

REACTIONS (3)
  - CARDIO-RESPIRATORY ARREST [None]
  - PNEUMONIA [None]
  - RESPIRATORY FAILURE [None]
